FAERS Safety Report 13466860 (Version 1)
Quarter: 2017Q2

REPORT INFORMATION
  Report Type: Spontaneous
  Country: FR (occurrence: FR)
  Receive Date: 20170421
  Receipt Date: 20170421
  Transmission Date: 20170830
  Serious: Yes (Hospitalization, Other)
  Sender: FDA-Public Use
  Company Number: FR-GLAXOSMITHKLINE-FR2017GSK054761

PATIENT
  Age: 39 Year
  Sex: Male

DRUGS (5)
  1. BECLOJET [Suspect]
     Active Substance: BECLOMETHASONE DIPROPIONATE
     Indication: BRONCHITIS
     Dosage: 250 UNK, BID
     Route: 055
     Dates: start: 20170111, end: 20170118
  2. BIOCALYPTOL [Suspect]
     Active Substance: PHOLCODINE
     Indication: BRONCHITIS
     Dosage: 15 ML, TID
     Route: 048
     Dates: start: 20170111, end: 20170118
  3. AMOXICILLINE + ACIDE CLAVULANIQUE BIOGARAN [Suspect]
     Active Substance: AMOXICILLIN\CLAVULANIC ACID
     Indication: BRONCHITIS
     Dosage: 2 DF, BID
     Route: 048
     Dates: start: 20170111, end: 20170118
  4. MONTELUKAST SODIUM. [Suspect]
     Active Substance: MONTELUKAST SODIUM
     Indication: BRONCHITIS
     Dosage: 10 MG, PRN
     Route: 048
     Dates: start: 20170111, end: 20170118
  5. OMEPRAZOLE. [Suspect]
     Active Substance: OMEPRAZOLE
     Indication: GASTROOESOPHAGEAL REFLUX DISEASE
     Dosage: 10 MG, 1D
     Route: 048
     Dates: start: 20170111, end: 20170116

REACTIONS (1)
  - Hepatitis [Recovered/Resolved]

NARRATIVE: CASE EVENT DATE: 20170116
